FAERS Safety Report 25285224 (Version 2)
Quarter: 2025Q3

REPORT INFORMATION
  Report Type: Report from Study
  Country: US (occurrence: US)
  Receive Date: 20250509
  Receipt Date: 20250807
  Transmission Date: 20251020
  Serious: Yes (Death)
  Sender: ABBVIE
  Company Number: US-ABBVIE-6271493

PATIENT
  Age: 85 Year
  Sex: Male

DRUGS (11)
  1. VENETOCLAX [Suspect]
     Active Substance: VENETOCLAX
     Indication: Chronic lymphocytic leukaemia
     Dosage: STRENGTH: 10 MG?TAKE 1 TABLET (10 MG TOTAL) BY MOUTH DAILY ON DAYS 1 THROUGH 7?LAST ADMIN DATE: F...
     Route: 048
     Dates: start: 20230216
  2. VENETOCLAX [Suspect]
     Active Substance: VENETOCLAX
     Indication: Chronic lymphocytic leukaemia
     Dosage: STRENGTH: 10 MG?TAKE 2 TABLETS (20 MG TOTAL) BY MOUTH DAILY ON DAYS 8 THROUGH 14.?LAST ADMIN DATE...
     Route: 048
     Dates: start: 202302
  3. VENETOCLAX [Suspect]
     Active Substance: VENETOCLAX
     Indication: Chronic lymphocytic leukaemia
     Dosage: STRENGTH: 50 MG?TAKE 1 TABLET (50 MG TOTAL) BY MOUTH DAILY ON DAYS 15 THROUGH 21
     Route: 048
     Dates: start: 2023, end: 2023
  4. VENETOCLAX [Suspect]
     Active Substance: VENETOCLAX
     Indication: Chronic lymphocytic leukaemia
     Dosage: STRENGTH: 100 MG?TAKE 1 TABLET (100 MG TOTAL) BY MOUTH DAILY STARTING ON DAY 22.
     Route: 048
     Dates: start: 2023, end: 2023
  5. TYLENOL [Concomitant]
     Active Substance: ACETAMINOPHEN
     Indication: Product used for unknown indication
     Dosage: TAKE 2 TABLETS (650 MG TOTAL) BY?MOUTH EVERY 6 (SIX) HOURS
     Route: 048
  6. PROVENTIL HFA [Concomitant]
     Active Substance: ALBUTEROL SULFATE
     Indication: Product used for unknown indication
     Dosage: INHALE 2 PUFFS EVERY 4 (FOUR) HOURS AS NEEDED FOR WHEEZING?90 MCG/ACTUATION
  7. VENTOLIN HFA [Concomitant]
     Active Substance: ALBUTEROL SULFATE
     Indication: Product used for unknown indication
     Dosage: 90 MCG/ACTUATION INHALE 2 PUFFS EVERY 4 (FOUR) HOURS AS NEEDED FOR WHEEZING
  8. PROAIR HFA [Concomitant]
     Active Substance: ALBUTEROL SULFATE
     Indication: Product used for unknown indication
     Dosage: 90 MCG/ACTUATION INHALE 2 PUFFS EVERY 4 (FOUR) HOURS AS NEEDED FOR WHEEZING
  9. GLEEVEC [Concomitant]
     Active Substance: IMATINIB MESYLATE
     Indication: Product used for unknown indication
     Dosage: TAKE 1 TABLET (100 MG TOTAL) BY?MOUTH 2 (TWO) TIMES A DAY
     Route: 048
  10. DUONEB [Concomitant]
     Active Substance: ALBUTEROL SULFATE\IPRATROPIUM BROMIDE
     Indication: Product used for unknown indication
     Dosage: 0.5-2.5 MG/3 ML?INHALE 3 ML EVERY 6 HOURS AS NEEDED
  11. LEVAQUIN [Concomitant]
     Active Substance: LEVOFLOXACIN
     Indication: Product used for unknown indication
     Route: 048

REACTIONS (1)
  - Death [Fatal]

NARRATIVE: CASE EVENT DATE: 20230603
